FAERS Safety Report 9175986 (Version 2)
Quarter: 2013Q3

REPORT INFORMATION
  Report Type: Spontaneous
  Country: RS (occurrence: RS)
  Receive Date: 20130320
  Receipt Date: 20130823
  Transmission Date: 20140515
  Serious: Yes (Other)
  Sender: FDA-Public Use
  Company Number: RS-NICOBRDEVP-2013-04465

PATIENT
  Sex: Female

DRUGS (4)
  1. RANITIDINE (AMALLC) [Suspect]
     Indication: GASTROOESOPHAGEAL REFLUX DISEASE
     Dosage: 2 X 1
     Route: 048
     Dates: start: 20130101, end: 20130115
  2. DOLQUINE [Concomitant]
     Indication: POLYARTHRITIS
     Dosage: 1 X 1
     Route: 065
     Dates: start: 20121124
  3. SORTIS [Concomitant]
     Indication: PRODUCT USED FOR UNKNOWN INDICATION
     Dosage: 1 X 1
     Route: 065
  4. EUTHYROX [Concomitant]
     Indication: PRODUCT USED FOR UNKNOWN INDICATION
     Dosage: 1 X 1
     Route: 065

REACTIONS (6)
  - Drug ineffective [Recovered/Resolved]
  - Abdominal pain upper [Recovered/Resolved]
  - Regurgitation [Recovered/Resolved]
  - Arthralgia [Recovered/Resolved]
  - Condition aggravated [Recovered/Resolved]
  - Gastritis [Recovered/Resolved]
